FAERS Safety Report 16741146 (Version 2)
Quarter: 2019Q3

REPORT INFORMATION
  Report Type: Spontaneous
  Country: US (occurrence: US)
  Receive Date: 20190826
  Receipt Date: 20190919
  Transmission Date: 20191005
  Serious: Yes (Other)
  Sender: FDA-Public Use
  Company Number: US-AQUESTIVE THERAPEUTICS, INC.-2019AQU00013

PATIENT

DRUGS (1)
  1. SYMPAZAN [Suspect]
     Active Substance: CLOBAZAM
     Indication: EPILEPSY

REACTIONS (2)
  - Drug ineffective [Recovered/Resolved]
  - Seizure [Unknown]
